FAERS Safety Report 9970315 (Version 1)
Quarter: 2014Q1

REPORT INFORMATION
  Report Type: Spontaneous
  Country: US (occurrence: None)
  Receive Date: 20140305
  Receipt Date: 20140305
  Transmission Date: 20141002
  Serious: Yes (Other)
  Sender: FDA-Public Use
  Company Number: None

PATIENT
  Age: 16 Day
  Sex: Female
  Weight: 45.36 kg

DRUGS (1)
  1. MICONAZOLE 3 [Suspect]
     Indication: FUNGAL INFECTION
     Dates: start: 20140301

REACTIONS (4)
  - Application site pain [None]
  - Application site pruritus [None]
  - Application site discomfort [None]
  - Application site pain [None]
